FAERS Safety Report 5056590-1 (Version None)
Quarter: 2006Q3

REPORT INFORMATION
  Report Type: 
  Country: None (occurrence: None)
  Receive Date: 20060720
  Receipt Date: 20060714
  Transmission Date: 20061208
  Serious: Yes (Hospitalization, Other)
  Sender: FDA-Public Use
  Company Number: GB-MERCK-0607GBR00075

PATIENT
  Age: 88 Year
  Sex: Female

DRUGS (10)
  1. ZOCOR [Suspect]
     Indication: ISCHAEMIC HEART DISEASE PROPHYLAXIS
     Route: 048
     Dates: start: 20051209, end: 20060517
  2. ALLOPURINOL [Concomitant]
     Route: 065
  3. AMIODARONE [Concomitant]
     Route: 065
  4. CLARITHROMYCIN [Concomitant]
     Route: 048
     Dates: start: 20060428, end: 20060505
  5. CLOPIDOGREL BISULFATE [Concomitant]
     Indication: ACUTE MYOCARDIAL INFARCTION
     Route: 048
  6. ACETAMINOPHEN AND PROPOXYPHENE HYDROCHLORIDE [Concomitant]
     Route: 048
  7. FUROSEMIDE [Concomitant]
     Indication: CARDIAC FAILURE CONGESTIVE
     Route: 048
  8. LEVOTHYROXINE SODIUM [Concomitant]
     Indication: HYPOTHYROIDISM
     Route: 048
  9. PREDNISOLONE [Concomitant]
     Indication: PAPILLARY MUSCLE RUPTURE
     Route: 048
  10. RISEDRONATE SODIUM [Concomitant]
     Route: 065

REACTIONS (3)
  - BLOOD CREATINE PHOSPHOKINASE INCREASED [None]
  - MUSCLE NECROSIS [None]
  - MYALGIA [None]
